FAERS Safety Report 23456580 (Version 1)
Quarter: 2024Q1

REPORT INFORMATION
  Report Type: Spontaneous
  Country: US (occurrence: US)
  Receive Date: 20240130
  Receipt Date: 20240130
  Transmission Date: 20240410
  Serious: No
  Sender: FDA-Public Use
  Company Number: CID000000000043910

PATIENT
  Age: 54 Year

DRUGS (2)
  1. UZEDY [Suspect]
     Active Substance: RISPERIDONE
     Indication: Schizoaffective disorder bipolar type
     Route: 058
  2. UZEDY [Suspect]
     Active Substance: RISPERIDONE
     Indication: Depression

REACTIONS (1)
  - Off label use [Unknown]
